FAERS Safety Report 5188614-5 (Version None)
Quarter: 2006Q4

REPORT INFORMATION
  Report Type: 
  Country: None (occurrence: None)
  Receive Date: 20061214
  Receipt Date: 20061201
  Transmission Date: 20070319
  Serious: Yes (Hospitalization)
  Sender: FDA-Public Use
  Company Number: 2006P1000280

PATIENT
  Age: 72 Year
  Sex: Female
  Weight: 75 kg

DRUGS (9)
  1. RETEPLASE (RETEPLASE) [Suspect]
     Indication: ACUTE MYOCARDIAL INFARCTION
     Dosage: IV
     Route: 042
     Dates: start: 20050926, end: 20050926
  2. ABCIXIMAB (ABCIXIMAB) [Suspect]
     Indication: ACUTE MYOCARDIAL INFARCTION
     Dosage: IV
     Route: 042
     Dates: start: 20050926
  3. ASPIRIN [Concomitant]
  4. TICLOPIDINE [Concomitant]
  5. BISOPROLOL FUMARATE [Concomitant]
  6. ENALAPRIL MALEATE [Concomitant]
  7. SIMVASTATIN [Concomitant]
  8. RAMIPRIL [Concomitant]
  9. INDAPAMIDE [Concomitant]

REACTIONS (1)
  - CORONARY ARTERY STENOSIS [None]
